FAERS Safety Report 12805171 (Version 1)
Quarter: 2016Q4

REPORT INFORMATION
  Report Type: Spontaneous
  Country: US (occurrence: US)
  Receive Date: 20161004
  Receipt Date: 20161004
  Transmission Date: 20170207
  Serious: Yes (Death, Hospitalization)
  Sender: FDA-Public Use
  Company Number: US-CIPLA LTD.-2016US18941

PATIENT

DRUGS (11)
  1. FLUDROCORTISONE [Suspect]
     Active Substance: FLUDROCORTISONE
     Dosage: 0.1 MG, DAILY
     Route: 048
  2. MIDODRINE [Suspect]
     Active Substance: MIDODRINE
     Dosage: 10 MG, EVERY 8 HOURS
     Route: 048
  3. EPOETIN ALFA [Suspect]
     Active Substance: ERYTHROPOIETIN
     Dosage: 10000 UNITS, THRICE WEEKLY
     Route: 058
  4. FENTANYL. [Suspect]
     Active Substance: FENTANYL
     Indication: PAIN
     Dosage: 50 MCG, MCG, EVERY 4 HOURS AS NEEDED
     Route: 042
  5. WARFARIN [Suspect]
     Active Substance: WARFARIN
     Indication: ANTICOAGULANT THERAPY
     Dosage: UNK
     Route: 048
  6. LACTULOSE. [Suspect]
     Active Substance: LACTULOSE
     Dosage: 30 ML, TID
     Route: 048
  7. FLUTICASONE [Suspect]
     Active Substance: FLUTICASONE\FLUTICASONE PROPIONATE
     Dosage: 50 MCG, DAILY
  8. APIXABAN [Suspect]
     Active Substance: APIXABAN
     Indication: ANTICOAGULANT THERAPY
     Dosage: 2.5 MG, BID
     Route: 065
  9. ACETAMINOPHEN. [Suspect]
     Active Substance: ACETAMINOPHEN
     Indication: PAIN
     Dosage: 650 MG, PRN, EVERY 4 HOURS
     Route: 048
  10. FAMOTIDINE. [Suspect]
     Active Substance: FAMOTIDINE
     Dosage: 40 MG, NIGHT
     Route: 048
  11. NYSTATIN. [Suspect]
     Active Substance: NYSTATIN
     Indication: SKIN LESION
     Dosage: UNK, 3 TIMES DAILY APPLIED TO AFFECTED AREAS
     Route: 061

REACTIONS (5)
  - Cardio-respiratory arrest [Fatal]
  - Gastrointestinal haemorrhage [Unknown]
  - Calciphylaxis [Unknown]
  - Hypotension [Unknown]
  - Septic shock [Unknown]
